FAERS Safety Report 16317777 (Version 1)
Quarter: 2019Q2

REPORT INFORMATION
  Report Type: Other
  Country: IE (occurrence: IE)
  Receive Date: 20190516
  Receipt Date: 20190516
  Transmission Date: 20190711
  Serious: Yes (Hospitalization, Other)
  Sender: FDA-Public Use
  Company Number: IE-CELLTRION INC.-2019IE021031

PATIENT

DRUGS (4)
  1. INFLIXIMAB (UNKNOWN) [Suspect]
     Active Substance: INFLIXIMAB
     Indication: RHEUMATOID ARTHRITIS
     Dosage: 5MG/KGS (644MG). LOADING DOSE 0-2-6 WEEK (ON 2ND)
     Route: 042
     Dates: start: 20190409
  2. CALVEPEN [Concomitant]
     Indication: OROPHARYNGEAL PAIN
     Dosage: 666 MG EVERY 6 HOURS
     Route: 048
     Dates: start: 20190404
  3. CALVEPEN [Concomitant]
     Indication: MYALGIA
  4. CALVEPEN [Concomitant]
     Indication: ARTHRALGIA

REACTIONS (6)
  - Urticaria [Recovering/Resolving]
  - Ocular hyperaemia [Recovering/Resolving]
  - Chest pain [Recovering/Resolving]
  - Flushing [Recovering/Resolving]
  - Nausea [Recovering/Resolving]
  - Throat tightness [Recovering/Resolving]

NARRATIVE: CASE EVENT DATE: 20190409
